FAERS Safety Report 9739943 (Version 2)
Quarter: 2014Q3

REPORT INFORMATION
  Report Type: Spontaneous
  Country: US (occurrence: US)
  Receive Date: 20131209
  Receipt Date: 20140916
  Transmission Date: 20150326
  Serious: No
  Sender: FDA-Public Use
  Company Number: US-ASTELLAS-2013US012239

PATIENT
  Age: 55 Year
  Sex: Male

DRUGS (1)
  1. XTANDI [Suspect]
     Active Substance: ENZALUTAMIDE
     Indication: PROSTATE CANCER METASTATIC
     Route: 048
     Dates: start: 201308, end: 20131122

REACTIONS (1)
  - Prostatic specific antigen increased [Unknown]

NARRATIVE: CASE EVENT DATE: 201309
